FAERS Safety Report 7746326-5 (Version None)
Quarter: 2011Q3

REPORT INFORMATION
  Report Type: 
  Country: None (occurrence: None)
  Receive Date: 20110913
  Receipt Date: 20110118
  Transmission Date: 20111222
  Serious: No
  Sender: FDA-Public Use
  Company Number: US-BAYER-201019313NA

PATIENT
  Age: 24 Year
  Sex: Female

DRUGS (2)
  1. MIRENA [Suspect]
     Indication: PRODUCT USED FOR UNKNOWN INDICATION
     Dosage: 20 MCG/24HR, UNK
     Route: 015
     Dates: start: 20080715
  2. DOXYCYCLINE [Concomitant]
     Indication: PNEUMONIA

REACTIONS (5)
  - AMENORRHOEA [None]
  - HYPOMENORRHOEA [None]
  - ADNEXA UTERI PAIN [None]
  - GENITAL HAEMORRHAGE [None]
  - ABDOMINAL PAIN LOWER [None]
